FAERS Safety Report 21134335 (Version 4)
Quarter: 2022Q3

REPORT INFORMATION
  Report Type: Report from Study
  Country: JP (occurrence: JP)
  Receive Date: 20220726
  Receipt Date: 20220823
  Transmission Date: 20221026
  Serious: Yes (Hospitalization)
  Sender: FDA-Public Use
  Company Number: JP-SEATTLE GENETICS-2022SGN06931

PATIENT
  Age: 73 Year
  Sex: Female
  Weight: 50 kg

DRUGS (4)
  1. TUCATINIB [Suspect]
     Active Substance: TUCATINIB
     Indication: Gallbladder cancer
     Dosage: 150 MG, BID ON DAYS 1-21 OF EVERY 21 DAY CYCLE
     Route: 048
     Dates: start: 20211228
  2. TRASTUZUMAB [Suspect]
     Active Substance: TRASTUZUMAB
     Indication: Gallbladder cancer
     Dosage: 8 MG/KG ONCE
     Route: 042
     Dates: start: 20211228
  3. TRASTUZUMAB [Suspect]
     Active Substance: TRASTUZUMAB
     Dosage: 6 MG/KG ON DAY 1 OF EACH CYCLE
     Route: 042
  4. LOXOPROFEN [Concomitant]
     Active Substance: LOXOPROFEN
     Dosage: UNK
     Dates: start: 20220719

REACTIONS (1)
  - Amylase increased [Recovered/Resolved]

NARRATIVE: CASE EVENT DATE: 20220722
